FAERS Safety Report 14567718 (Version 1)
Quarter: 2018Q1

REPORT INFORMATION
  Report Type: Spontaneous
  Country: US (occurrence: US)
  Receive Date: 20180223
  Receipt Date: 20180223
  Transmission Date: 20180509
  Serious: No
  Sender: FDA-Public Use
  Company Number: US-GLAXOSMITHKLINE-US2018026816

PATIENT
  Age: 46 Year
  Sex: Female

DRUGS (1)
  1. ALLI [Suspect]
     Active Substance: ORLISTAT
     Indication: WEIGHT LOSS DIET
     Dosage: UNK
     Route: 048
     Dates: start: 20180116, end: 20180205

REACTIONS (6)
  - Contraindicated product administered [Unknown]
  - Diarrhoea [Not Recovered/Not Resolved]
  - Dehydration [Unknown]
  - Muscle spasms [Not Recovered/Not Resolved]
  - Malaise [Not Recovered/Not Resolved]
  - Emergency care examination [Not Recovered/Not Resolved]

NARRATIVE: CASE EVENT DATE: 20180120
